FAERS Safety Report 9414412 (Version 1)
Quarter: 2013Q3

REPORT INFORMATION
  Report Type: Spontaneous
  Country: US (occurrence: US)
  Receive Date: 20130723
  Receipt Date: 20130723
  Transmission Date: 20140515
  Serious: No
  Sender: FDA-Public Use
  Company Number: US-009507513-1307USA010524

PATIENT
  Age: 70 Year
  Sex: Male

DRUGS (3)
  1. SINGULAIR [Suspect]
     Dosage: 10 MG, QD
     Route: 048
  2. SINGULAIR [Suspect]
     Dosage: 10 MG, QD
     Route: 048
     Dates: start: 201305, end: 20130715
  3. VITAMINS (UNSPECIFIED) [Concomitant]

REACTIONS (5)
  - Prostatomegaly [Not Recovered/Not Resolved]
  - Abdominal pain [Not Recovered/Not Resolved]
  - Gastrointestinal pain [Not Recovered/Not Resolved]
  - Therapeutic response decreased [Unknown]
  - Respiratory disorder [Not Recovered/Not Resolved]
